FAERS Safety Report 7601708-7 (Version None)
Quarter: 2011Q2

REPORT INFORMATION
  Report Type: 
  Country: None (occurrence: None)
  Receive Date: 20110629
  Receipt Date: 20101012
  Transmission Date: 20111010
  Serious: Yes (Other)
  Sender: FDA-Public Use
  Company Number: 733619

PATIENT
  Age: 27 Year
  Sex: Male
  Weight: 86.2 kg

DRUGS (2)
  1. LYRICA [Suspect]
     Indication: HEADACHE
     Dosage: 75 MG 1 PER DAY ORAL
     Route: 048
     Dates: start: 20060101
  2. KLONOPIN [Suspect]
     Indication: ANGER
     Dosage: ORAL
     Route: 048

REACTIONS (3)
  - DRUG INEFFECTIVE [None]
  - DEPRESSION [None]
  - INSOMNIA [None]
